FAERS Safety Report 7149412-6 (Version None)
Quarter: 2010Q4

REPORT INFORMATION
  Report Type: 
  Country: None (occurrence: None)
  Receive Date: 20101209
  Receipt Date: 20101129
  Transmission Date: 20110411
  Serious: Yes (Hospitalization, Other)
  Sender: FDA-Public Use
  Company Number: US-ABBOTT-10P-163-0688689-00

PATIENT
  Sex: Male
  Weight: 97.156 kg

DRUGS (13)
  1. NIASPAN [Suspect]
     Indication: HYPERLIPIDAEMIA
     Dates: start: 20100915
  2. PLAVIX [Concomitant]
     Indication: THROMBOSIS
  3. PLAVIX [Concomitant]
     Indication: PROPHYLAXIS
  4. FISH OIL [Concomitant]
     Indication: PRODUCT USED FOR UNKNOWN INDICATION
  5. LISINOPRIL [Concomitant]
     Indication: HYPERTENSION
  6. SIMVASTATIN [Concomitant]
     Indication: HYPERCHOLESTEROLAEMIA
  7. SPIRONOLACTONE [Concomitant]
     Indication: HYPERTENSION
  8. CARVEDILOL [Concomitant]
     Indication: PRODUCT USED FOR UNKNOWN INDICATION
  9. ASPIRIN [Concomitant]
     Indication: THROMBOSIS
  10. ASPIRIN [Concomitant]
     Indication: PROPHYLAXIS
  11. VITAMIN D [Concomitant]
     Indication: VITAMIN SUPPLEMENTATION
  12. LANTUS [Concomitant]
     Indication: DIABETES MELLITUS
  13. HUMALOG [Concomitant]
     Indication: DIABETES MELLITUS

REACTIONS (2)
  - ARRHYTHMIA [None]
  - ISCHAEMIC CARDIOMYOPATHY [None]
